FAERS Safety Report 14902046 (Version 3)
Quarter: 2019Q2

REPORT INFORMATION
  Report Type: Spontaneous
  Country: US (occurrence: US)
  Receive Date: 20180516
  Receipt Date: 20190531
  Transmission Date: 20190711
  Serious: Yes (Hospitalization, Other)
  Sender: FDA-Public Use
  Company Number: US-JNJFOC-20180517119

PATIENT
  Age: 92 Year
  Sex: Female
  Weight: 53 kg

DRUGS (16)
  1. ATENOLOL. [Concomitant]
     Active Substance: ATENOLOL
  2. AMIODARONE [Concomitant]
     Active Substance: AMIODARONE
  3. ATORVASTATIN [Concomitant]
     Active Substance: ATORVASTATIN
  4. GABAPENTIN. [Concomitant]
     Active Substance: GABAPENTIN
  5. KLOR-CON [Concomitant]
     Active Substance: POTASSIUM CHLORIDE
  6. ISOSORBIDE MONONITRATE. [Concomitant]
     Active Substance: ISOSORBIDE MONONITRATE
  7. TIMOLOL. [Concomitant]
     Active Substance: TIMOLOL
  8. AMLODIPINE [Concomitant]
     Active Substance: AMLODIPINE BESYLATE
  9. NORCO [Concomitant]
     Active Substance: ACETAMINOPHEN\HYDROCODONE BITARTRATE
  10. LEVOTHYROXINE. [Concomitant]
     Active Substance: LEVOTHYROXINE
  11. MYRBETRIQ [Concomitant]
     Active Substance: MIRABEGRON
  12. DETROL [Concomitant]
     Active Substance: TOLTERODINE TARTRATE
  13. TRAVATAN [Concomitant]
     Active Substance: TRAVOPROST
  14. IMBRUVICA [Suspect]
     Active Substance: IBRUTINIB
     Indication: PRODUCT USED FOR UNKNOWN INDICATION
     Route: 048
     Dates: end: 2018
  15. IMBRUVICA [Suspect]
     Active Substance: IBRUTINIB
     Indication: PRODUCT USED FOR UNKNOWN INDICATION
     Route: 048
     Dates: start: 2018
  16. FOSAMAX [Concomitant]
     Active Substance: ALENDRONATE SODIUM

REACTIONS (4)
  - Transient ischaemic attack [Unknown]
  - Femur fracture [Unknown]
  - Neck injury [Unknown]
  - Fall [Unknown]

NARRATIVE: CASE EVENT DATE: 20180412
